FAERS Safety Report 4831808-6 (Version None)
Quarter: 2005Q4

REPORT INFORMATION
  Report Type: 
  Country: None (occurrence: None)
  Receive Date: 20051118
  Receipt Date: 20050930
  Transmission Date: 20060501
  Serious: Yes (Hospitalization)
  Sender: FDA-Public Use
  Company Number: US-MERCK-0510USA00700

PATIENT
  Age: 83 Year
  Sex: Male
  Weight: 92 kg

DRUGS (10)
  1. VIOXX [Suspect]
     Indication: SPINAL COLUMN STENOSIS
     Route: 048
     Dates: start: 20010123, end: 20040703
  2. VIOXX [Suspect]
     Indication: HYPOAESTHESIA
     Route: 048
     Dates: start: 20010123, end: 20040703
  3. DIAZEPAM [Concomitant]
     Route: 065
  4. ACETAMINOPHEN AND HYDROCODONE BITARTRATE [Concomitant]
     Route: 065
  5. LORAZEPAM [Concomitant]
     Route: 065
  6. OMEPRAZOLE [Concomitant]
     Route: 065
  7. ZOCOR [Concomitant]
     Route: 065
  8. TERAZOSIN HYDROCHLORIDE [Concomitant]
     Route: 065
  9. TRIAMCINOLONE ACETONIDE [Concomitant]
     Route: 065
  10. ZOLPIDEM TARTRATE [Concomitant]
     Route: 065

REACTIONS (2)
  - ARRHYTHMIA [None]
  - MYOCARDIAL INFARCTION [None]
